FAERS Safety Report 19779470 (Version 2)
Quarter: 2022Q3

REPORT INFORMATION
  Report Type: Spontaneous
  Country: NI (occurrence: NI)
  Receive Date: 20210902
  Receipt Date: 20220629
  Transmission Date: 20221027
  Serious: Yes (Death, Other)
  Sender: FDA-Public Use
  Company Number: NI-NOVARTISPH-NVSC2021NI193424

PATIENT
  Age: 43 Year
  Sex: Male

DRUGS (1)
  1. GLIVEC [Suspect]
     Active Substance: IMATINIB MESYLATE
     Indication: Gastrointestinal stromal tumour
     Dosage: 800 MG (2 X 400 MG)
     Route: 065

REACTIONS (3)
  - Death [Fatal]
  - Colon cancer [Recovering/Resolving]
  - Second primary malignancy [Recovering/Resolving]

NARRATIVE: CASE EVENT DATE: 20210709
